FAERS Safety Report 7582370-9 (Version None)
Quarter: 2011Q2

REPORT INFORMATION
  Report Type: 
  Country: None (occurrence: None)
  Receive Date: 20110623
  Receipt Date: 20110613
  Transmission Date: 20111010
  Serious: Yes (Other)
  Sender: FDA-Public Use
  Company Number: US-2011-10389

PATIENT
  Age: 53 Year
  Sex: Male

DRUGS (4)
  1. BUSULFEX [Suspect]
     Indication: STEM CELL TRANSPLANT
     Dosage: INTRAVENOUS
     Route: 042
  2. CYCLOSPORINE [Concomitant]
  3. METHOTREXATE [Concomitant]
  4. CYCLOPHOSPHAMIDE [Suspect]
     Indication: STEM CELL TRANSPLANT

REACTIONS (2)
  - NEOPLASM RECURRENCE [None]
  - CHRONIC MYELOMONOCYTIC LEUKAEMIA [None]
